FAERS Safety Report 24130942 (Version 1)
Quarter: 2024Q3

REPORT INFORMATION
  Report Type: Spontaneous
  Country: GB (occurrence: GB)
  Receive Date: 20240724
  Receipt Date: 20240724
  Transmission Date: 20241017
  Serious: Yes (Other)
  Sender: CHEPLAPHARM
  Company Number: None

PATIENT
  Age: 25 Year
  Sex: Male
  Weight: 65 kg

DRUGS (1)
  1. OLANZAPINE [Suspect]
     Active Substance: OLANZAPINE

REACTIONS (7)
  - Cognitive disorder [Unknown]
  - Wrong technique in product usage process [Unknown]
  - Sedation complication [Unknown]
  - Somnolence [Unknown]
  - Anorgasmia [Unknown]
  - Hunger [Unknown]
  - Lethargy [Unknown]

NARRATIVE: CASE EVENT DATE: 20230301
